FAERS Safety Report 8880010 (Version 2)
Quarter: 2012Q4

REPORT INFORMATION
  Report Type: Report from Study
  Country: DK (occurrence: JP)
  Receive Date: 20121031
  Receipt Date: 20121126
  Transmission Date: 20130627
  Serious: Yes (Other)
  Sender: FDA-Public Use
  Company Number: JP-FRI-1000039847

PATIENT
  Age: 26 Year
  Sex: Female
  Weight: 50 kg

DRUGS (6)
  1. ESCITALOPRAM [Suspect]
     Indication: DEPRESSION
     Dosage: 10 mg
     Route: 048
     Dates: start: 20120607, end: 20120625
  2. ESCITALOPRAM [Suspect]
     Route: 048
     Dates: start: 20120621
  3. NITRAZEPAM [Suspect]
     Indication: BULIMIA NERVOSA
     Route: 048
     Dates: start: 20120613, end: 20120625
  4. NITRAZEPAM [Suspect]
     Route: 048
     Dates: start: 20120621
  5. CERCINE [Suspect]
     Indication: BULIMIA NERVOSA
     Route: 048
     Dates: start: 20120613
  6. CERCINE [Suspect]
     Route: 048
     Dates: start: 20120621

REACTIONS (2)
  - Suicide attempt [Recovered/Resolved]
  - Overdose [Recovered/Resolved]
